FAERS Safety Report 7243088-5 (Version None)
Quarter: 2011Q1

REPORT INFORMATION
  Report Type: 
  Country: None (occurrence: None)
  Receive Date: 20110125
  Receipt Date: 20101124
  Transmission Date: 20110831
  Serious: No
  Sender: FDA-Public Use
  Company Number: US-AMGEN-KDL440854

PATIENT
  Sex: Female
  Weight: 62.585 kg

DRUGS (5)
  1. OMEPRAZOLE [Concomitant]
     Indication: GASTROOESOPHAGEAL REFLUX DISEASE
     Dosage: 20 UNK, QD
     Route: 048
  2. AMLODIPINE [Concomitant]
     Indication: HYPERTENSION
     Dosage: 5 UNK, QD
     Route: 048
  3. PROLIA [Suspect]
     Indication: PRODUCT USED FOR UNKNOWN INDICATION
     Dosage: UNK UNK, UNK
     Dates: start: 20100903, end: 20100903
  4. PRAVASTAN [Concomitant]
     Indication: BLOOD CHOLESTEROL ABNORMAL
     Dosage: 40 UNK, QD
     Route: 048
  5. ARICEPT                            /01318901/ [Concomitant]
     Indication: COGNITIVE DISORDER
     Dosage: 5 MG, QD
     Route: 048

REACTIONS (4)
  - MUSCLE SPASMS [None]
  - VOMITING [None]
  - DIZZINESS [None]
  - NAUSEA [None]
